FAERS Safety Report 15746988 (Version 1)
Quarter: 2018Q4

REPORT INFORMATION
  Report Type: Other
  Country: CZ (occurrence: CZ)
  Receive Date: 20181220
  Receipt Date: 20181220
  Transmission Date: 20190205
  Serious: Yes (Death, Life-Threatening, Hospitalization)
  Sender: FDA-Public Use
  Company Number: CZ-NOSTRUM LABORATORIES, INC.-2060457

PATIENT
  Age: 78 Year
  Sex: Female

DRUGS (1)
  1. METFORMIN HYDROCHLORIDE EXTENDED-RELEASE [Suspect]
     Active Substance: METFORMIN HYDROCHLORIDE
     Indication: TYPE 2 DIABETES MELLITUS
     Route: 048

REACTIONS (6)
  - Acute respiratory failure [Fatal]
  - Lactic acidosis [Fatal]
  - Acute kidney injury [Recovered/Resolved]
  - Hypovolaemic shock [Fatal]
  - Urinary tract infection [Recovered/Resolved]
  - Sepsis [Unknown]
